FAERS Safety Report 18369965 (Version 2)
Quarter: 2020Q4

REPORT INFORMATION
  Report Type: Report from Study
  Country: US (occurrence: US)
  Receive Date: 20201012
  Receipt Date: 20201209
  Transmission Date: 20210114
  Serious: Yes (Hospitalization, Other)
  Sender: FDA-Public Use
  Company Number: US-AMGEN-USASL2020161799

PATIENT
  Age: 73 Year
  Sex: Female

DRUGS (1)
  1. PROLIA [Suspect]
     Active Substance: DENOSUMAB
     Indication: OSTEOPOROSIS POSTMENOPAUSAL
     Dosage: 60 MILLIGRAM, Q6MO
     Route: 065
     Dates: start: 202004

REACTIONS (4)
  - Cerebral haemorrhage [Unknown]
  - Dental restoration failure [Not Recovered/Not Resolved]
  - Glioma [Unknown]
  - Gingival recession [Not Recovered/Not Resolved]

NARRATIVE: CASE EVENT DATE: 2020
